FAERS Safety Report 4966577-2 (Version None)
Quarter: 2006Q2

REPORT INFORMATION
  Report Type: 
  Country: None (occurrence: None)
  Receive Date: 20060407
  Receipt Date: 20060317
  Transmission Date: 20061013
  Serious: Yes (Hospitalization, Other)
  Sender: FDA-Public Use
  Company Number: GB-BRISTOL-MYERS SQUIBB COMPANY-13319058

PATIENT
  Age: 40 Year
  Sex: Female

DRUGS (5)
  1. ABILIFY [Suspect]
     Indication: SCHIZOPHRENIA
     Route: 048
     Dates: start: 20060208, end: 20060307
  2. DEPIXOL [Suspect]
     Indication: SCHIZOPHRENIA
  3. DEPIXOL [Suspect]
     Dates: end: 20060315
  4. ELLESTE-DUET [Concomitant]
  5. CHLORPROMAZINE [Concomitant]

REACTIONS (1)
  - SCHIZOPHRENIA [None]
